FAERS Safety Report 4381918-5 (Version None)
Quarter: 2004Q2

REPORT INFORMATION
  Report Type: 
  Country: None (occurrence: None)
  Receive Date: 20040615
  Receipt Date: 20040528
  Transmission Date: 20050107
  Serious: Yes (Other)
  Sender: FDA-Public Use
  Company Number: DSA_24490_2004

PATIENT
  Age: 69 Year
  Sex: Female
  Weight: 58 kg

DRUGS (9)
  1. ENALAPRIL MALEATE [Suspect]
     Indication: HYPERTENSION
     Dosage: 20 MG Q DAY PO
     Route: 048
  2. BUPIVACAINE HCL [Suspect]
     Indication: ANAESTHESIA
     Dosage: 3 ML ONCE IT
     Route: 037
  3. BUPIVACAINE HCL [Suspect]
     Indication: ANAESTHESIA
     Dosage: 3.5 ML ONCE IT
     Route: 037
  4. ENALAPRIL MALEATE AND HYDROCHLOROTHIAZIDE [Suspect]
     Indication: HYPERTENSION
     Dosage: 1 TAB Q DAY PO
     Route: 048
  5. ASPIRIN [Concomitant]
  6. DIAZEPAM [Concomitant]
  7. ATROPINE [Concomitant]
  8. PETHIDINE [Concomitant]
  9. RINGERS SOLUTION [Concomitant]
     Route: 042

REACTIONS (3)
  - BLOOD PRESSURE SYSTOLIC INCREASED [None]
  - HYPOTENSION [None]
  - PROCEDURAL COMPLICATION [None]
